FAERS Safety Report 16197509 (Version 1)
Quarter: 2019Q2

REPORT INFORMATION
  Report Type: Spontaneous
  Country: US (occurrence: US)
  Receive Date: 20190311
  Receipt Date: 20190311
  Transmission Date: 20190711
  Serious: Yes (Hospitalization, Disabling)
  Sender: FDA-Public Use
  Company Number: None

PATIENT
  Age: 83 Year
  Sex: Male
  Weight: 88 kg

DRUGS (1)
  1. AMIODARONE [Suspect]
     Active Substance: AMIODARONE
     Indication: ATRIAL FIBRILLATION
     Route: 048
     Dates: start: 20170630, end: 20180501

REACTIONS (4)
  - Respiratory failure [None]
  - Atelectasis [None]
  - Pulmonary fibrosis [None]
  - Cough [None]

NARRATIVE: CASE EVENT DATE: 20180503
